FAERS Safety Report 21022045 (Version 1)
Quarter: 2022Q2

REPORT INFORMATION
  Report Type: Spontaneous
  Country: US (occurrence: None)
  Receive Date: 20220628
  Receipt Date: 20220628
  Transmission Date: 20220720
  Serious: No
  Sender: FDA-Public Use
  Company Number: None

PATIENT
  Sex: Female

DRUGS (1)
  1. DUPIXENT [Suspect]
     Active Substance: DUPILUMAB
     Indication: Asthma
     Dosage: OTHER QUANTITY : PT RESPONDED THE M;?FREQUENCY : EVERY OTHER WEEK;?OTHER ROUTE : UNDER SKIN;?
     Route: 050
     Dates: start: 20220513

REACTIONS (2)
  - Device malfunction [None]
  - Therapy interrupted [None]
